FAERS Safety Report 13473329 (Version 2)
Quarter: 2017Q2

REPORT INFORMATION
  Report Type: Spontaneous
  Country: JP (occurrence: JP)
  Receive Date: 20170424
  Receipt Date: 20170522
  Transmission Date: 20170830
  Serious: Yes (Death, Hospitalization, Other)
  Sender: FDA-Public Use
  Company Number: JP-009507513-1704JPN000098J

PATIENT
  Age: 76 Year
  Sex: Male

DRUGS (1)
  1. KEYTRUDA [Suspect]
     Active Substance: PEMBROLIZUMAB
     Indication: NON-SMALL CELL LUNG CANCER
     Dosage: 200 MG, UNK
     Route: 041
     Dates: start: 20170322, end: 2017

REACTIONS (3)
  - Malignant neoplasm progression [Fatal]
  - Thyroxine increased [Unknown]
  - Malaise [Unknown]

NARRATIVE: CASE EVENT DATE: 2017
